FAERS Safety Report 16807795 (Version 1)
Quarter: 2019Q3

REPORT INFORMATION
  Report Type: Spontaneous
  Country: US (occurrence: US)
  Receive Date: 20190915
  Receipt Date: 20190915
  Transmission Date: 20191005
  Serious: Yes (Death)
  Sender: FDA-Public Use
  Company Number: PHHY2019US212501

PATIENT
  Age: 54 Year
  Sex: Male

DRUGS (1)
  1. ACETAMINOPHEN. [Suspect]
     Active Substance: ACETAMINOPHEN
     Indication: PRODUCT USED FOR UNKNOWN INDICATION
     Dosage: UNK
     Route: 065

REACTIONS (11)
  - Coagulopathy [Fatal]
  - Acidosis [Fatal]
  - Methaemoglobinaemia [Fatal]
  - Alanine aminotransferase increased [Fatal]
  - Aspartate aminotransferase increased [Fatal]
  - Metabolic acidosis [Fatal]
  - Delirium [Fatal]
  - Hypotension [Fatal]
  - Overdose [Fatal]
  - Mental status changes [Fatal]
  - Hyperlactacidaemia [Fatal]
